FAERS Safety Report 25102893 (Version 1)
Quarter: 2025Q1

REPORT INFORMATION
  Report Type: Spontaneous
  Country: US (occurrence: US)
  Receive Date: 20250321
  Receipt Date: 20250321
  Transmission Date: 20250409
  Serious: Yes (Life-Threatening, Hospitalization)
  Sender: INDOCO REMEDIES LIMITED
  Company Number: US-INDOCO-IND-2025-US-LIT-00388

PATIENT
  Age: 66 Year
  Sex: Female

DRUGS (2)
  1. APIXABAN [Suspect]
     Active Substance: APIXABAN
     Indication: Atrial fibrillation
     Route: 065
  2. HEPARIN [Suspect]
     Active Substance: HEPARIN SODIUM
     Indication: Atrial fibrillation
     Route: 065

REACTIONS (3)
  - Spontaneous splenic rupture [Recovering/Resolving]
  - Splenic haematoma [Recovering/Resolving]
  - Haemoperitoneum [Recovering/Resolving]
